FAERS Safety Report 5187785-4 (Version None)
Quarter: 2006Q4

REPORT INFORMATION
  Report Type: 
  Country: None (occurrence: None)
  Receive Date: 20061212
  Receipt Date: 20061205
  Transmission Date: 20070319
  Serious: Yes (Hospitalization)
  Sender: FDA-Public Use
  Company Number: 2006148476

PATIENT
  Age: 32 Year
  Sex: Male
  Weight: 88.4514 kg

DRUGS (1)
  1. BENADRYL ITCH STOPPING SPRAY (DIPHENHYDRAMINE, ZINC ACETATE) [Suspect]
     Indication: DERMATITIS CONTACT
     Dosage: 1 SPRAY DATE 1/4 SPRAYS DAY 2, TOPICAL
     Route: 061
     Dates: start: 20061128, end: 20061129

REACTIONS (2)
  - PAIN [None]
  - SWELLING [None]
